FAERS Safety Report 10075615 (Version 2)
Quarter: 2014Q2

REPORT INFORMATION
  Report Type: Spontaneous
  Country: US (occurrence: US)
  Receive Date: 20140414
  Receipt Date: 20140501
  Transmission Date: 20141212
  Serious: Yes (Life-Threatening, Hospitalization)
  Sender: FDA-Public Use
  Company Number: US-JNJFOC-20140404506

PATIENT
  Age: 59 Year
  Sex: Male

DRUGS (7)
  1. STELARA [Suspect]
     Indication: PSORIASIS
     Route: 058
     Dates: start: 20140130
  2. STELARA [Suspect]
     Indication: PSORIASIS
     Route: 058
     Dates: start: 201304
  3. LOSARTAN [Concomitant]
     Route: 065
  4. AMLODIPINE [Concomitant]
     Route: 065
  5. CARVEDIOL [Concomitant]
     Route: 065
  6. ATORVASTATIN [Concomitant]
     Route: 065
  7. ASA [Concomitant]
     Route: 065

REACTIONS (1)
  - Cerebrovascular accident [Recovering/Resolving]
